FAERS Safety Report 18981872 (Version 1)
Quarter: 2021Q1

REPORT INFORMATION
  Report Type: Spontaneous
  Country: US (occurrence: US)
  Receive Date: 20210308
  Receipt Date: 20210308
  Transmission Date: 20210420
  Serious: No
  Sender: FDA-Public Use
  Company Number: US-SA-2021SA064474

PATIENT
  Age: 69 Year
  Sex: Female

DRUGS (1)
  1. LANTUS SOLOSTAR [Suspect]
     Active Substance: INSULIN GLARGINE
     Indication: TYPE 2 DIABETES MELLITUS
     Dosage: 20 UNITS/40 UNITS; AM/PM

REACTIONS (5)
  - Inappropriate schedule of product administration [Unknown]
  - COVID-19 [Unknown]
  - Cold-stimulus headache [Unknown]
  - Blood glucose increased [Unknown]
  - Aphasia [Unknown]
